FAERS Safety Report 17806923 (Version 1)
Quarter: 2020Q2

REPORT INFORMATION
  Report Type: Spontaneous
  Country: US (occurrence: US)
  Receive Date: 20200519
  Receipt Date: 20200519
  Transmission Date: 20200714
  Serious: Yes (Hospitalization)
  Sender: FDA-Public Use
  Company Number: None

PATIENT
  Age: 63 Year
  Sex: Female

DRUGS (34)
  1. FENOFIBRATE. [Concomitant]
     Active Substance: FENOFIBRATE
  2. METFORMIN [Concomitant]
     Active Substance: METFORMIN HYDROCHLORIDE
  3. MULTIVITAMIN [Concomitant]
     Active Substance: VITAMINS
  4. VITAMIN D3 [Concomitant]
     Active Substance: CHOLECALCIFEROL
  5. STELARA [Suspect]
     Active Substance: USTEKINUMAB
     Indication: PSORIATIC ARTHROPATHY
     Dosage: ?          OTHER DOSE:1 SYR;OTHER FREQUENCY:Q3M;?
     Route: 058
     Dates: start: 20180619
  6. ASPIRIN. [Concomitant]
     Active Substance: ASPIRIN
  7. FUROSEMIDE. [Concomitant]
     Active Substance: FUROSEMIDE
  8. AMIODARONE [Concomitant]
     Active Substance: AMIODARONE
  9. BIOTIN [Concomitant]
     Active Substance: BIOTIN
  10. CALCIPOTRIEN [Concomitant]
  11. HYDROCOD/APAP [Concomitant]
  12. JARDIANCE [Concomitant]
     Active Substance: EMPAGLIFLOZIN
  13. SYNJARDY XR [Concomitant]
     Active Substance: EMPAGLIFLOZIN\METFORMIN HYDROCHLORIDE
  14. CARVEDILOL. [Concomitant]
     Active Substance: CARVEDILOL
  15. CIPROFLOXACN [Concomitant]
     Active Substance: CIPROFLOXACIN
  16. DICLOFENAC [Concomitant]
     Active Substance: DICLOFENAC
  17. METHOTREXATE. [Concomitant]
     Active Substance: METHOTREXATE
  18. CLINDAMYCIN. [Concomitant]
     Active Substance: CLINDAMYCIN
  19. DICYCLOMINE [Concomitant]
     Active Substance: DICYCLOMINE HYDROCHLORIDE
  20. GABAPENTIN. [Concomitant]
     Active Substance: GABAPENTIN
  21. ISOSORB MONO [Concomitant]
     Active Substance: ISOSORBIDE MONONITRATE
  22. LIVALO [Concomitant]
     Active Substance: PITAVASTATIN CALCIUM
  23. NITROGLYCERN [Concomitant]
  24. OMEGA-3 ACIDS [Concomitant]
     Active Substance: OMEGA-3 FATTY ACIDS
  25. CALCIUM [Concomitant]
     Active Substance: CALCIUM
  26. DEXAMETHASON [Concomitant]
     Active Substance: DEXAMETHASONE
  27. IBUPROFEN. [Concomitant]
     Active Substance: IBUPROFEN
  28. IRBESARTAN. [Concomitant]
     Active Substance: IRBESARTAN
  29. FOLIC ACID. [Concomitant]
     Active Substance: FOLIC ACID
  30. LEVOTHYROXIN [Concomitant]
     Active Substance: LEVOTHYROXINE
  31. METANX [Concomitant]
     Active Substance: LEVOMEFOLATE CALCIUM\METHYLCOBALAMIN\PYRIDOXAL PHOSPHATE ANHYDROUS
  32. TRAMADOL HCL [Concomitant]
     Active Substance: TRAMADOL HYDROCHLORIDE
  33. TRULICITY [Concomitant]
     Active Substance: DULAGLUTIDE
  34. GLUCOSAMINE [Concomitant]
     Active Substance: GLUCOSAMINE

REACTIONS (2)
  - Therapy interrupted [None]
  - Condition aggravated [None]

NARRATIVE: CASE EVENT DATE: 20190519
